FAERS Safety Report 16566924 (Version 1)
Quarter: 2019Q3

REPORT INFORMATION
  Report Type: Spontaneous
  Country: US (occurrence: US)
  Receive Date: 20190712
  Receipt Date: 20190712
  Transmission Date: 20191004
  Serious: No
  Sender: FDA-Public Use
  Company Number: US-AMGEN INC.-USASP2019110238

PATIENT
  Sex: Female

DRUGS (2)
  1. AIMOVIG [Suspect]
     Active Substance: ERENUMAB-AOOE
     Indication: PRODUCT USED FOR UNKNOWN INDICATION
     Dosage: 70 MILLIGRAM, UNK
     Route: 065
     Dates: start: 2018
  2. AIMOVIG [Suspect]
     Active Substance: ERENUMAB-AOOE
     Dosage: 140 MILLIGRAM, UNK
     Route: 065
     Dates: start: 2018, end: 2019

REACTIONS (11)
  - Constipation [Unknown]
  - Neuralgia [Unknown]
  - Arthralgia [Unknown]
  - Rash pruritic [Unknown]
  - Irritable bowel syndrome [Unknown]
  - Drug ineffective [Unknown]
  - Myalgia [Unknown]
  - Pain [Unknown]
  - Fatigue [Unknown]
  - Oedema [Unknown]
  - Crepitations [Unknown]

NARRATIVE: CASE EVENT DATE: 2018
